FAERS Safety Report 18712480 (Version 2)
Quarter: 2021Q1

REPORT INFORMATION
  Report Type: Spontaneous
  Country: FR (occurrence: FR)
  Receive Date: 20210107
  Receipt Date: 20210202
  Transmission Date: 20210419
  Serious: Yes (Hospitalization, Other)
  Sender: FDA-Public Use
  Company Number: FR-PFIZER INC-2021001835

PATIENT
  Age: 16 Year
  Sex: Male
  Weight: 54 kg

DRUGS (4)
  1. METHYLENEDIOXYMETHAMPHETAMINE [Suspect]
     Active Substance: MIDOMAFETAMINE
     Dosage: UNK
     Dates: start: 202012
  2. CANNABIS [Suspect]
     Active Substance: CANNABIS SATIVA SUBSP. INDICA TOP
     Dosage: UNK
     Dates: start: 202012
  3. SERTRALINE HCL [Suspect]
     Active Substance: SERTRALINE HYDROCHLORIDE
     Indication: TOXICITY TO VARIOUS AGENTS
     Dosage: 14 DF
     Route: 048
     Dates: start: 20201213, end: 20201213
  4. TERCIAN [CYAMEMAZINE TARTRATE] [Suspect]
     Active Substance: CYAMEMAZINE
     Indication: TOXICITY TO VARIOUS AGENTS
     Dosage: 87 DF
     Route: 048
     Dates: start: 20201213, end: 20201213

REACTIONS (6)
  - Somnolence [Recovered/Resolved]
  - Poisoning deliberate [Recovered/Resolved]
  - Epistaxis [Recovered/Resolved]
  - Intentional product misuse [Unknown]
  - Toxicity to various agents [Unknown]
  - Hypoventilation [Recovered/Resolved]

NARRATIVE: CASE EVENT DATE: 20201213
